FAERS Safety Report 12586933 (Version 1)
Quarter: 2016Q3

REPORT INFORMATION
  Report Type: Spontaneous
  Country: US (occurrence: None)
  Receive Date: 20160722
  Receipt Date: 20160722
  Transmission Date: 20161109
  Serious: Yes (Hospitalization)
  Sender: FDA-Public Use
  Company Number: None

PATIENT
  Age: 3 Year

DRUGS (1)
  1. TOBRAMYCIN 300MCG/5ML 20 ML AKORN [Suspect]
     Active Substance: TOBRAMYCIN
     Indication: CHRONIC RESPIRATORY FAILURE
     Dosage: 300MCG/5ML 20 ML =4NEB 5ML -20BID INHALE VIA NEBULIZER
     Route: 055
     Dates: start: 20160303

REACTIONS (1)
  - Dehydration [None]

NARRATIVE: CASE EVENT DATE: 201607
